FAERS Safety Report 9040707 (Version 1)
Quarter: 2013Q1

REPORT INFORMATION
  Report Type: Report from Study
  Country: US (occurrence: US)
  Receive Date: 20130129
  Receipt Date: 20130129
  Transmission Date: 20140127
  Serious: No
  Sender: FDA-Public Use
  Company Number: US-ABBOTT-12P-163-0895445-00

PATIENT
  Age: 47 None
  Sex: Female
  Weight: 163.44 kg

DRUGS (7)
  1. HUMIRA 40 MG/0.8 ML PEN [Suspect]
     Indication: PSORIASIS
     Dates: start: 201101, end: 201111
  2. LASIX [Concomitant]
     Indication: FLUID RETENTION
  3. POTASSIUM [Concomitant]
     Indication: MINERAL SUPPLEMENTATION
  4. LEVOTHYROXINE [Concomitant]
     Indication: HYPOTHYROIDISM
  5. CLONAZEPAM [Concomitant]
     Indication: ANXIETY
  6. WELLBUTRIN [Concomitant]
     Indication: DEPRESSION
  7. METFORMIN [Concomitant]
     Indication: DIABETES MELLITUS

REACTIONS (4)
  - Rash macular [Recovering/Resolving]
  - Pruritus [Recovered/Resolved]
  - Hypersensitivity [Unknown]
  - Rash macular [Recovering/Resolving]
